FAERS Safety Report 8176424-6 (Version None)
Quarter: 2012Q1

REPORT INFORMATION
  Report Type: 
  Country: None (occurrence: None)
  Receive Date: 20120228
  Receipt Date: 20120214
  Transmission Date: 20120608
  Serious: Yes (Other)
  Sender: FDA-Public Use
  Company Number: 2012S1001647

PATIENT
  Age: 27 Year
  Sex: Female
  Weight: 60.5 kg

DRUGS (1)
  1. PRISTIQ [Suspect]
     Dosage: 50 MG;ONCE;ORAL
     Route: 048
     Dates: start: 20120114, end: 20120114

REACTIONS (2)
  - ABORTION SPONTANEOUS [None]
  - MATERNAL EXPOSURE DURING PREGNANCY [None]
